FAERS Safety Report 19821707 (Version 1)
Quarter: 2021Q3

REPORT INFORMATION
  Report Type: Spontaneous
  Country: US (occurrence: US)
  Receive Date: 20210913
  Receipt Date: 20210913
  Transmission Date: 20211014
  Serious: No
  Sender: FDA-Public Use
  Company Number: US-CELGENEUS-USA-20210900420

PATIENT
  Sex: Female
  Weight: 79.9 kg

DRUGS (3)
  1. REVLIMID [Suspect]
     Active Substance: LENALIDOMIDE
     Indication: PLASMA CELL MYELOMA
     Dosage: FREQ : QD
     Route: 048
     Dates: start: 202010
  2. REVLIMID [Suspect]
     Active Substance: LENALIDOMIDE
     Dosage: FREQ : QD
     Route: 048
     Dates: start: 202109
  3. REVLIMID [Suspect]
     Active Substance: LENALIDOMIDE
     Dosage: FREQ : QD
     Route: 048
     Dates: start: 202101

REACTIONS (1)
  - Pyrexia [Recovered/Resolved]
